FAERS Safety Report 8586250-1 (Version None)
Quarter: 2012Q3

REPORT INFORMATION
  Report Type: 
  Country: None (occurrence: None)
  Receive Date: 20120810
  Receipt Date: 20120802
  Transmission Date: 20120928
  Serious: Yes (Hospitalization)
  Sender: FDA-Public Use
  Company Number: GB-ROCHE-1096967

PATIENT
  Sex: Female

DRUGS (1)
  1. MABTHERA [Suspect]
     Indication: PRODUCT USED FOR UNKNOWN INDICATION
     Dates: start: 20100519

REACTIONS (4)
  - HUMERUS FRACTURE [None]
  - JOINT DISLOCATION [None]
  - PERIPHERAL NERVE INJURY [None]
  - HYPOAESTHESIA [None]
